FAERS Safety Report 7580785 (Version 3)
Quarter: 2017Q4

REPORT INFORMATION
  Report Type: Report from Study
  Country: US (occurrence: US)
  Receive Date: 20100910
  Receipt Date: 20171206
  Transmission Date: 20180321
  Serious: Yes (Death, Hospitalization)
  Sender: FDA-Public Use
  Company Number: US-ROCHE-725855

PATIENT
  Age: 76 Year
  Sex: Female
  Weight: 58.4 kg

DRUGS (8)
  1. OCTREOTIDE. [Suspect]
     Active Substance: OCTREOTIDE
     Indication: NEUROENDOCRINE CARCINOMA
     Route: 030
  2. ZANTAC [Concomitant]
     Active Substance: RANITIDINE HYDROCHLORIDE
     Dosage: FREQUENCY: DAY 1, PRE-MEDICATION FOR NAUSEA
     Route: 042
     Dates: start: 20100728, end: 20100818
  3. TYLENOL [Concomitant]
     Active Substance: ACETAMINOPHEN
     Dosage: FREQUENCY: DAY 1, AS PRE-MEDICATION FOR ALLERGIC REACTION
     Route: 048
  4. BENTYL [Concomitant]
     Active Substance: DICYCLOMINE HYDROCHLORIDE
     Indication: GASTROINTESTINAL TRACT IRRITATION
     Dosage: FREQUENCY: AS NECESSARY
     Route: 048
     Dates: start: 20100804, end: 20100830
  5. DECADRON [Concomitant]
     Active Substance: DEXAMETHASONE
     Dosage: FREQUENCY: DAY1, PRE-MEDICATION FOR NAUSEA
     Route: 065
     Dates: start: 20100728, end: 20100818
  6. BENADRYL [Concomitant]
     Active Substance: DIPHENHYDRAMINE HYDROCHLORIDE
     Dosage: FREQUENCY: DAY 1, PRE-MEDICATION FOR NAUSEA
     Route: 042
     Dates: start: 20100728, end: 20100818
  7. PERTUZUMAB. [Suspect]
     Active Substance: PERTUZUMAB
     Indication: CARCINOID TUMOUR
     Dosage: FREQUENCY: EVERY 21 DAYS
     Route: 042
     Dates: start: 20100728, end: 20100818
  8. BEVACIZUMAB. [Suspect]
     Active Substance: BEVACIZUMAB
     Indication: CARCINOID TUMOUR
     Dosage: FORM: NOT REPORTED
     Route: 042
     Dates: start: 20100728, end: 20100818

REACTIONS (1)
  - Large intestinal obstruction [Fatal]

NARRATIVE: CASE EVENT DATE: 20100830
